FAERS Safety Report 6418131-3 (Version None)
Quarter: 2009Q4

REPORT INFORMATION
  Report Type: 
  Country: None (occurrence: None)
  Receive Date: 20091028
  Receipt Date: 20091016
  Transmission Date: 20100525
  Serious: Yes (Hospitalization, Other)
  Sender: FDA-Public Use
  Company Number: US-PFIZER INC-2009259460

PATIENT
  Sex: Female
  Weight: 76.644 kg

DRUGS (13)
  1. LYRICA [Suspect]
     Indication: NEUROPATHY PERIPHERAL
     Dosage: 50 MG, 2X/DAY
     Dates: start: 20090801
  2. LORTAB [Suspect]
     Dosage: 7.5/500
  3. SPIRIVA [Concomitant]
     Dosage: UNK
  4. THEOPHYLLINE [Concomitant]
     Dosage: UNK
  5. QVAR 40 [Concomitant]
     Dosage: UNK
  6. XOPENEX [Concomitant]
     Dosage: UNK
  7. MONTELUKAST [Concomitant]
     Dosage: UNK
  8. FOSAMAX PLUS D [Concomitant]
     Dosage: UNK
  9. ATIVAN [Concomitant]
     Dosage: UNK
  10. ZESTORETIC [Concomitant]
     Dosage: 20/12.5
  11. CELEBREX [Concomitant]
     Dosage: UNK
     Dates: start: 20090729
  12. SEPTRA [Concomitant]
     Dosage: UNK
     Dates: start: 20090729
  13. LORATADINE [Concomitant]
     Dosage: UNK

REACTIONS (3)
  - ANKLE FRACTURE [None]
  - DIZZINESS [None]
  - FALL [None]
